FAERS Safety Report 5982859-X (Version None)
Quarter: 2008Q4

REPORT INFORMATION
  Report Type: 
  Country: None (occurrence: None)
  Receive Date: 20081208
  Receipt Date: 20081127
  Transmission Date: 20090506
  Serious: Yes (Hospitalization)
  Sender: FDA-Public Use
  Company Number: JP-AMGEN-US215398

PATIENT
  Sex: Female
  Weight: 53 kg

DRUGS (9)
  1. ENBREL [Suspect]
     Indication: RHEUMATOID ARTHRITIS
     Route: 058
     Dates: start: 20060623
  2. ENBREL [Suspect]
     Route: 058
     Dates: start: 20070604
  3. VOLTAREN [Concomitant]
     Indication: RHEUMATOID ARTHRITIS
     Route: 048
  4. NORVASC [Concomitant]
     Route: 048
  5. MUCOSTA [Concomitant]
     Route: 048
  6. FOSAMAX [Concomitant]
     Route: 048
  7. PREDONINE [Concomitant]
     Indication: RHEUMATOID ARTHRITIS
     Route: 048
     Dates: end: 20061018
  8. PREDONINE [Concomitant]
     Route: 048
     Dates: start: 20061006, end: 20061018
  9. FAMOTIDINE [Concomitant]
     Route: 048

REACTIONS (1)
  - UVEITIS [None]
